FAERS Safety Report 18180815 (Version 1)
Quarter: 2020Q3

REPORT INFORMATION
  Report Type: Spontaneous
  Country: US (occurrence: US)
  Receive Date: 20200821
  Receipt Date: 20200821
  Transmission Date: 20201103
  Serious: No
  Sender: FDA-Public Use
  Company Number: US-SUNOVION-2020SUN002317

PATIENT
  Sex: Male

DRUGS (1)
  1. LATUDA [Suspect]
     Active Substance: LURASIDONE HYDROCHLORIDE
     Dosage: 40 MG
     Route: 048

REACTIONS (8)
  - Tremor [Unknown]
  - Mydriasis [Unknown]
  - Abdominal discomfort [Unknown]
  - Asthenia [Unknown]
  - Product dose omission issue [Unknown]
  - Muscle tightness [Unknown]
  - Vomiting [Unknown]
  - Hypotension [Unknown]
